FAERS Safety Report 6732266-7 (Version None)
Quarter: 2010Q2

REPORT INFORMATION
  Report Type: 
  Country: None (occurrence: None)
  Receive Date: 20100519
  Receipt Date: 20100513
  Transmission Date: 20101027
  Serious: Yes (Hospitalization)
  Sender: FDA-Public Use
  Company Number: B0649323A

PATIENT
  Age: 73 Year
  Sex: Female

DRUGS (12)
  1. OMEPRAZOLE [Suspect]
     Dosage: 40MG PER DAY
     Route: 048
     Dates: start: 19990101, end: 20080101
  2. PANTOPRAZOLE [Suspect]
     Dosage: 40MG PER DAY
     Route: 048
     Dates: start: 20080101, end: 20080101
  3. ESOMEPRAZOLE [Suspect]
     Dosage: 20MG PER DAY
     Dates: start: 20080101, end: 20080101
  4. PANTOPRAZOLE [Suspect]
     Dosage: 40MG PER DAY
     Dates: start: 20080101, end: 20080101
  5. CIMETIDINE [Suspect]
  6. RANITIDINE [Suspect]
  7. STEROID [Concomitant]
  8. ALFACALCIDOL [Concomitant]
     Dosage: 250NG PER DAY
  9. CALCICHEW D3 [Concomitant]
     Route: 048
  10. FUROSEMIDE [Concomitant]
     Indication: HYPERTENSION
     Dosage: 20MG PER DAY
     Dates: start: 20050101
  11. FUROSEMIDE [Concomitant]
     Dosage: 40MG PER DAY
     Dates: start: 20050101
  12. BENDROFLUMETHIAZIDE [Concomitant]
     Indication: HYPERTENSION
     Dosage: 2.5MG PER DAY
     Dates: start: 20010101

REACTIONS (15)
  - ABDOMINAL PAIN [None]
  - ARTHRALGIA [None]
  - CHEST PAIN [None]
  - CIRCULATORY COLLAPSE [None]
  - DIARRHOEA [None]
  - DYSPEPSIA [None]
  - FALL [None]
  - GAIT DISTURBANCE [None]
  - HYPOCALCAEMIA [None]
  - HYPOMAGNESAEMIA [None]
  - LETHARGY [None]
  - MUSCLE SPASMS [None]
  - PARAESTHESIA [None]
  - RASH PRURITIC [None]
  - TETANY [None]
